FAERS Safety Report 8425157-7 (Version None)
Quarter: 2012Q2

REPORT INFORMATION
  Report Type: 
  Country: None (occurrence: None)
  Receive Date: 20120611
  Receipt Date: 20120528
  Transmission Date: 20120825
  Serious: Yes (Other)
  Sender: FDA-Public Use
  Company Number: ES-ACCORD-013643

PATIENT
  Age: 60 Year
  Sex: Male

DRUGS (1)
  1. GEMCITABINE [Suspect]
     Dosage: ON DAYS 1, 8 AND 15.
     Dates: start: 20090601

REACTIONS (2)
  - LIVEDO RETICULARIS [None]
  - THROMBOTIC MICROANGIOPATHY [None]
